FAERS Safety Report 16566669 (Version 1)
Quarter: 2019Q3

REPORT INFORMATION
  Report Type: Spontaneous
  Country: CA (occurrence: CA)
  Receive Date: 20190712
  Receipt Date: 20190712
  Transmission Date: 20191004
  Serious: Yes (Other)
  Sender: FDA-Public Use
  Company Number: CA-BAXTER-2019BAX013563

PATIENT

DRUGS (8)
  1. ETOPOSIDE. [Suspect]
     Active Substance: ETOPOSIDE
     Indication: CLEAR CELL SARCOMA OF THE KIDNEY
     Dosage: DOSAGE FORM: NOT SPECIFIED
     Route: 065
  2. IFEX [Suspect]
     Active Substance: IFOSFAMIDE
     Indication: CLEAR CELL SARCOMA OF THE KIDNEY
     Route: 065
  3. VINCRISTINE [Suspect]
     Active Substance: VINCRISTINE
     Indication: CLEAR CELL SARCOMA OF THE KIDNEY
     Route: 065
  4. CARBOPLATIN. [Suspect]
     Active Substance: CARBOPLATIN
     Route: 065
  5. ETOPOSIDE. [Suspect]
     Active Substance: ETOPOSIDE
     Route: 065
  6. CARBOPLATIN. [Suspect]
     Active Substance: CARBOPLATIN
     Indication: CLEAR CELL SARCOMA OF THE KIDNEY
     Dosage: DOSAGE FORM: SOLUTION INTRAVENOUS.
     Route: 065
  7. DOXORUBICIN [Suspect]
     Active Substance: DOXORUBICIN
     Indication: CLEAR CELL SARCOMA OF THE KIDNEY
     Dosage: DOSAGE FORM: SOLUTION INTRAVENOUS
     Route: 065
  8. PROCYTOX (CYCLOPHOSPHAMIDE) 2000MG/VIAL [Suspect]
     Active Substance: CYCLOPHOSPHAMIDE
     Indication: CLEAR CELL SARCOMA OF THE KIDNEY
     Dosage: DOSAGE FORM: NOT SPECIFIED
     Route: 065

REACTIONS (3)
  - Haematotoxicity [Unknown]
  - Clear cell sarcoma of the kidney [Unknown]
  - Malignant neoplasm progression [Unknown]
